FAERS Safety Report 8475759-7 (Version None)
Quarter: 2012Q2

REPORT INFORMATION
  Report Type: 
  Country: None (occurrence: None)
  Receive Date: 20120628
  Receipt Date: 20120619
  Transmission Date: 20120825
  Serious: Yes (Other)
  Sender: FDA-Public Use
  Company Number: US-ASTRAZENECA-2011SE71178

PATIENT
  Age: 54 Year
  Sex: Female

DRUGS (12)
  1. SEROQUEL [Suspect]
     Route: 048
  2. PAXIL [Concomitant]
  3. SEROQUEL [Suspect]
     Indication: BIPOLAR DISORDER
     Route: 048
  4. SEROQUEL [Suspect]
     Route: 048
  5. XANEX [Concomitant]
  6. WATER PILL [Concomitant]
  7. SEROQUEL [Suspect]
     Indication: ANXIETY
     Route: 048
  8. PAIN PILL FOR HER ARM [Concomitant]
  9. SEROQUEL [Suspect]
     Indication: DEPRESSION
     Route: 048
  10. SEROQUEL [Suspect]
     Route: 048
  11. AZITHROMYCIN [Suspect]
     Route: 065
  12. PHENERGAN EXPECTORANT W/ CODEINE [Concomitant]

REACTIONS (8)
  - PHARYNGITIS STREPTOCOCCAL [None]
  - SOFT TISSUE INJURY [None]
  - OEDEMA PERIPHERAL [None]
  - BRONCHITIS [None]
  - ABDOMINAL DISCOMFORT [None]
  - FALL [None]
  - SINUSITIS [None]
  - HUMERUS FRACTURE [None]
